FAERS Safety Report 22357146 (Version 2)
Quarter: 2023Q2

REPORT INFORMATION
  Report Type: Spontaneous
  Country: JP (occurrence: JP)
  Receive Date: 20230524
  Receipt Date: 20230530
  Transmission Date: 20230721
  Serious: Yes (Other)
  Sender: FDA-Public Use
  Company Number: JP-SA-2023SA131154

PATIENT
  Age: 31 Year
  Sex: Male
  Weight: 78 kg

DRUGS (2)
  1. DUPIXENT [Suspect]
     Active Substance: DUPILUMAB
     Indication: Dermatitis atopic
     Dosage: DAILY DOSE: 300 MG, 2 A, DAILY
     Route: 058
     Dates: start: 20230421, end: 20230421
  2. FEXOFENADINE HYDROCHLORIDE [Concomitant]
     Active Substance: FEXOFENADINE HYDROCHLORIDE
     Indication: Dermatitis atopic
     Dosage: 60 MG, BID
     Route: 048
     Dates: start: 20230302, end: 20230422

REACTIONS (9)
  - Erysipelas [Unknown]
  - White blood cell count increased [Unknown]
  - Malaise [Recovered/Resolved]
  - Lymphadenopathy [Unknown]
  - Lymph node pain [Recovering/Resolving]
  - Feeling hot [Recovered/Resolved]
  - Pyrexia [Recovered/Resolved]
  - Auricular swelling [Recovered/Resolved]
  - Parotid gland enlargement [Recovered/Resolved]

NARRATIVE: CASE EVENT DATE: 20230101
